FAERS Safety Report 14652631 (Version 1)
Quarter: 2018Q1

REPORT INFORMATION
  Report Type: Spontaneous
  Country: US (occurrence: US)
  Receive Date: 20180316
  Receipt Date: 20180316
  Transmission Date: 20180509
  Serious: No
  Sender: FDA-Public Use
  Company Number: None

PATIENT
  Age: 50 Year
  Sex: Female

DRUGS (2)
  1. OCALIVA [Suspect]
     Active Substance: OBETICHOLIC ACID
     Indication: PRIMARY BILIARY CHOLANGITIS
     Route: 048
     Dates: start: 20170825
  2. URSODIOL. [Concomitant]
     Active Substance: URSODIOL

REACTIONS (2)
  - Ear infection [None]
  - Ear pruritus [None]

NARRATIVE: CASE EVENT DATE: 20180314
